FAERS Safety Report 6326270-0 (Version None)
Quarter: 2009Q3

REPORT INFORMATION
  Report Type: 
  Country: None (occurrence: None)
  Receive Date: 20090821
  Receipt Date: 20090810
  Transmission Date: 20100115
  Serious: Yes (Other)
  Sender: FDA-Public Use
  Company Number: 8050186

PATIENT

DRUGS (2)
  1. CIMZIA [Suspect]
  2. CYCLOSPORINE [Concomitant]

REACTIONS (4)
  - ABDOMINAL PAIN [None]
  - ARTHRALGIA [None]
  - MYALGIA [None]
  - PARALYSIS [None]
